FAERS Safety Report 8480637-3 (Version None)
Quarter: 2012Q3

REPORT INFORMATION
  Report Type: 
  Country: None (occurrence: None)
  Receive Date: 20120702
  Receipt Date: 20091223
  Transmission Date: 20120928
  Serious: No
  Sender: FDA-Public Use
  Company Number: 2009BI042076

PATIENT
  Sex: Female

DRUGS (2)
  1. TYSABRI [Suspect]
     Indication: MULTIPLE SCLEROSIS
     Route: 042
     Dates: start: 20071120, end: 20081216
  2. TYSABRI [Suspect]
     Route: 042
     Dates: start: 20090630

REACTIONS (18)
  - COORDINATION ABNORMAL [None]
  - CEREBRAL ATROPHY [None]
  - SPEECH DISORDER [None]
  - FEAR OF NEEDLES [None]
  - ROAD TRAFFIC ACCIDENT [None]
  - DISTURBANCE IN ATTENTION [None]
  - PRURITUS GENERALISED [None]
  - STRESS [None]
  - TREMOR [None]
  - VISUAL PATHWAY DISORDER [None]
  - RASH PRURITIC [None]
  - ALTERED VISUAL DEPTH PERCEPTION [None]
  - OPTIC NERVE DISORDER [None]
  - BALANCE DISORDER [None]
  - BLOOD IRON DECREASED [None]
  - DIPLOPIA [None]
  - MALAISE [None]
  - MULTIPLE SCLEROSIS [None]
